FAERS Safety Report 6740378-7 (Version None)
Quarter: 2010Q2

REPORT INFORMATION
  Report Type: 
  Country: None (occurrence: None)
  Receive Date: 20100525
  Receipt Date: 20100518
  Transmission Date: 20101027
  Serious: Yes (Other)
  Sender: FDA-Public Use
  Company Number: CH-WYE-G06141810

PATIENT
  Age: 62 Year
  Sex: Male

DRUGS (2)
  1. EFFEXOR [Suspect]
     Dosage: STARTED ON AN UNKNOWN DATE, 150 MG DAILY
     Route: 048
  2. REMERON [Concomitant]
     Dosage: DOSE AND FREQUENCY UNKNOWN

REACTIONS (3)
  - INTESTINAL OPERATION [None]
  - POST PROCEDURAL COMPLICATION [None]
  - PROSTATE CANCER [None]
